FAERS Safety Report 6271929-7 (Version None)
Quarter: 2009Q3

REPORT INFORMATION
  Report Type: 
  Country: None (occurrence: None)
  Receive Date: 20090717
  Receipt Date: 20090708
  Transmission Date: 20100115
  Serious: Yes (Death)
  Sender: FDA-Public Use
  Company Number: JP-PFIZER INC-2009235961

PATIENT

DRUGS (4)
  1. SILDENAFIL CITRATE [Suspect]
     Indication: PULMONARY ARTERIAL HYPERTENSION
     Dosage: 20 MG, 1X/DAY
     Dates: start: 20090409
  2. FLOLAN [Concomitant]
     Dosage: UNK
     Route: 042
     Dates: start: 20090410
  3. SULPERAZON [Concomitant]
     Dosage: UNK
     Route: 042
     Dates: start: 20090417
  4. INOVAN [Concomitant]
     Dosage: UNK
     Route: 042
     Dates: start: 20090413

REACTIONS (1)
  - DEATH [None]
